FAERS Safety Report 18429252 (Version 9)
Quarter: 2022Q1

REPORT INFORMATION
  Report Type: Report from Study
  Country: CN (occurrence: CN)
  Receive Date: 20201026
  Receipt Date: 20220301
  Transmission Date: 20220423
  Serious: Yes (Other)
  Sender: FDA-Public Use
  Company Number: NVSC2020CN285955

PATIENT
  Age: 57 Year
  Sex: Male

DRUGS (35)
  1. ENTRESTO [Suspect]
     Active Substance: SACUBITRIL\VALSARTAN
     Indication: Cardiac failure chronic
     Dosage: 25 MG
     Route: 048
     Dates: start: 20200825, end: 20201108
  2. ENTRESTO [Suspect]
     Active Substance: SACUBITRIL\VALSARTAN
     Dosage: 50 MG
     Route: 048
     Dates: start: 20201109, end: 20210909
  3. INSULIN NOS [Concomitant]
     Active Substance: INSULIN NOS
     Indication: Cardiac failure
     Dosage: 10 IU
     Route: 042
     Dates: start: 20200828, end: 20200828
  4. METOCLOPRAMIDE DIHYDROCHLORIDE [Concomitant]
     Indication: Prophylaxis
     Dosage: 10 MG, UNKNOWN
     Route: 042
     Dates: start: 20200828, end: 20200828
  5. ASPIRIN [Concomitant]
     Active Substance: ASPIRIN
     Indication: Cardiac failure
     Dosage: 0.1 G
     Route: 048
     Dates: start: 20200822, end: 20200827
  6. ASPIRIN [Concomitant]
     Active Substance: ASPIRIN
     Dosage: 0.1 G
     Route: 048
     Dates: start: 20200828, end: 20200828
  7. ASPIRIN [Concomitant]
     Active Substance: ASPIRIN
     Dosage: 0.1 G
     Route: 048
     Dates: start: 20200829
  8. TICAGRELOR [Concomitant]
     Active Substance: TICAGRELOR
     Indication: Cardiac failure
     Dosage: 90 MG
     Route: 048
     Dates: start: 20200822, end: 20200827
  9. TICAGRELOR [Concomitant]
     Active Substance: TICAGRELOR
     Dosage: 90 MG
     Route: 048
     Dates: start: 20200828, end: 20200828
  10. ATORVASTATIN CALCIUM [Concomitant]
     Active Substance: ATORVASTATIN CALCIUM
     Indication: Cardiac failure
     Dosage: 40 MG
     Route: 048
     Dates: start: 20200822, end: 20200827
  11. ATORVASTATIN CALCIUM [Concomitant]
     Active Substance: ATORVASTATIN CALCIUM
     Dosage: 40 MG
     Route: 048
     Dates: start: 20200828, end: 20200828
  12. ATORVASTATIN CALCIUM [Concomitant]
     Active Substance: ATORVASTATIN CALCIUM
     Dosage: 40 MG
     Route: 048
     Dates: start: 20200829
  13. RABEPRAZOLE SODIUM [Concomitant]
     Active Substance: RABEPRAZOLE SODIUM
     Indication: Prophylaxis
     Dosage: 20 MG
     Route: 048
     Dates: start: 20200822, end: 20200827
  14. RABEPRAZOLE SODIUM [Concomitant]
     Active Substance: RABEPRAZOLE SODIUM
     Dosage: 20 MG
     Route: 048
     Dates: start: 20200828, end: 20200828
  15. RABEPRAZOLE SODIUM [Concomitant]
     Active Substance: RABEPRAZOLE SODIUM
     Dosage: 10 MG
     Route: 048
     Dates: start: 20200903
  16. METOPROLOL SUCCINATE [Concomitant]
     Active Substance: METOPROLOL SUCCINATE
     Indication: Cardiac failure
     Dosage: 47.5 MG
     Route: 048
     Dates: start: 20200823, end: 20200827
  17. METOPROLOL SUCCINATE [Concomitant]
     Active Substance: METOPROLOL SUCCINATE
     Dosage: 47.5 MG
     Route: 048
     Dates: start: 20200828, end: 20200828
  18. METOPROLOL SUCCINATE [Concomitant]
     Active Substance: METOPROLOL SUCCINATE
     Dosage: 47.5 MG
     Route: 048
     Dates: start: 20200829
  19. DAPAGLIFLOZIN [Concomitant]
     Active Substance: DAPAGLIFLOZIN
     Indication: Pre-existing disease
     Dosage: 10 MG
     Route: 048
     Dates: start: 20200825
  20. IPRATROPIUM BROMIDE [Concomitant]
     Active Substance: IPRATROPIUM BROMIDE
     Indication: Prophylaxis
     Dosage: 0.5 MG (SOLUTION FOR INHALATION)
     Route: 055
     Dates: start: 20200822, end: 20200831
  21. AMIODARONE [Concomitant]
     Active Substance: AMIODARONE
     Indication: Cardiac failure
     Dosage: 0.2 G, UNKNOWN
     Route: 048
     Dates: start: 20200828
  22. AMIODARONE [Concomitant]
     Active Substance: AMIODARONE
     Dosage: 0.45 G, UNKNOWN, INJECTION
     Route: 042
     Dates: end: 20200828
  23. INSULIN GLARGINE [Concomitant]
     Active Substance: INSULIN GLARGINE
     Indication: Pre-existing disease
     Dosage: 10 IU
     Route: 058
     Dates: start: 20200824, end: 20200827
  24. INSULIN GLARGINE [Concomitant]
     Active Substance: INSULIN GLARGINE
     Dosage: 10 IU
     Route: 058
     Dates: start: 20200827
  25. INSULIN GLARGINE [Concomitant]
     Active Substance: INSULIN GLARGINE
     Dosage: 14 IU
     Route: 058
     Dates: start: 20200828
  26. ALPRAZOLAM [Concomitant]
     Active Substance: ALPRAZOLAM
     Indication: Prophylaxis
     Dosage: 0.4 MG
     Route: 048
     Dates: start: 20200822
  27. EZETIMIBE [Concomitant]
     Active Substance: EZETIMIBE
     Indication: Cardiac failure
     Dosage: 10 MG
     Route: 048
     Dates: start: 20200823
  28. MAGNESIUM ASPARTATE\POTASSIUM ASPARTATE [Concomitant]
     Active Substance: MAGNESIUM ASPARTATE\POTASSIUM ASPARTATE
     Indication: Cardiac failure
     Dosage: 2 DF
     Route: 048
     Dates: start: 20200828, end: 20200903
  29. POTASSIUM CHLORIDE [Concomitant]
     Active Substance: POTASSIUM CHLORIDE
     Indication: Cardiac failure
     Dosage: 1 G
     Route: 048
     Dates: start: 20200827, end: 20200828
  30. POTASSIUM CHLORIDE [Concomitant]
     Active Substance: POTASSIUM CHLORIDE
     Dosage: 1 G
     Route: 042
     Dates: start: 20200828, end: 20200828
  31. MAGNESIUM SULFATE [Concomitant]
     Active Substance: MAGNESIUM SULFATE
     Indication: Cardiac failure
     Dosage: 2.5 G, UNKNOWN
     Route: 042
     Dates: start: 20200828, end: 20200828
  32. AMIODARONE HYDROCHLORIDE [Concomitant]
     Active Substance: AMIODARONE HYDROCHLORIDE
     Indication: Cardiac failure
     Dosage: 0.45 G
     Route: 042
     Dates: start: 20200828, end: 20200828
  33. BUDESONIDE [Concomitant]
     Active Substance: BUDESONIDE
     Indication: Prophylaxis
     Dosage: 1 MG (SUSPENSION FOR INHALATION)
     Route: 055
     Dates: start: 20200822, end: 20200826
  34. INSULIN LISPRO [Concomitant]
     Active Substance: INSULIN LISPRO
     Indication: Pre-existing disease
     Dosage: 10 IU
     Route: 058
     Dates: start: 20200824, end: 20200827
  35. INSULIN LISPRO [Concomitant]
     Active Substance: INSULIN LISPRO
     Dosage: 10 IU
     Route: 058
     Dates: start: 20200903

REACTIONS (4)
  - Ventricular arrhythmia [Recovered/Resolved]
  - Cardiac ventricular thrombosis [Not Recovered/Not Resolved]
  - Wrong technique in product usage process [Recovered/Resolved]
  - Wrong technique in product usage process [Recovered/Resolved]

NARRATIVE: CASE EVENT DATE: 20200825
